FAERS Safety Report 24592670 (Version 1)
Quarter: 2024Q4

REPORT INFORMATION
  Report Type: Report from Study
  Country: US (occurrence: US)
  Receive Date: 20241108
  Receipt Date: 20241108
  Transmission Date: 20250114
  Serious: Yes (Other)
  Sender: MIRUM PHARMACEUTICALS
  Company Number: US-MIRUM PHARMACEUTICALS INTERNATIONAL B.V.-US-MIR-24-00033

PATIENT
  Age: 18 Year
  Sex: Male
  Weight: 69.8 kg

DRUGS (2)
  1. LIVMARLI [Suspect]
     Active Substance: MARALIXIBAT CHLORIDE
     Indication: Cholestatic pruritus
     Dosage: 90 MILLILITER, AS DIRECTED
     Route: 048
     Dates: start: 20230926, end: 20240122
  2. LIVMARLI [Suspect]
     Active Substance: MARALIXIBAT CHLORIDE
     Dosage: 3 MILLILITER, QD
     Route: 048

REACTIONS (2)
  - Liver transplant [Recovering/Resolving]
  - Off label use [Unknown]

NARRATIVE: CASE EVENT DATE: 20230926
